FAERS Safety Report 8425959-7 (Version None)
Quarter: 2012Q2

REPORT INFORMATION
  Report Type: 
  Country: None (occurrence: None)
  Receive Date: 20120611
  Receipt Date: 20120606
  Transmission Date: 20120825
  Serious: Yes (Other)
  Sender: FDA-Public Use
  Company Number: JP-JNJFOC-20120600929

PATIENT
  Age: 65 Year
  Sex: Male

DRUGS (2)
  1. MORPHINE HCL ELIXIR [Concomitant]
     Route: 065
     Dates: start: 20120517
  2. FENTANYL-100 [Suspect]
     Indication: CANCER PAIN
     Route: 062
     Dates: start: 20120518, end: 20120518

REACTIONS (2)
  - DRUG INTOLERANCE [None]
  - DELIRIUM [None]
